FAERS Safety Report 19117862 (Version 3)
Quarter: 2021Q2

REPORT INFORMATION
  Report Type: Report from Study
  Country: US (occurrence: US)
  Receive Date: 20210409
  Receipt Date: 20210607
  Transmission Date: 20210717
  Serious: Yes (Hospitalization, Other)
  Sender: FDA-Public Use
  Company Number: US-GILEAD-2021-0524554

PATIENT
  Age: 31 Year
  Sex: Male

DRUGS (54)
  1. BACITRACIN. [Concomitant]
     Active Substance: BACITRACIN
  2. CALCIUM GLUCONATE. [Concomitant]
     Active Substance: CALCIUM GLUCONATE
  3. CEFEPIME [Concomitant]
     Active Substance: CEFEPIME HYDROCHLORIDE
  4. SENNOSIDE A+B [Concomitant]
     Active Substance: SENNOSIDES A AND B
  5. HYPROMELLOSE [Concomitant]
     Active Substance: HYPROMELLOSES
  6. IPRATROPIUM BROMIDE. [Concomitant]
     Active Substance: IPRATROPIUM BROMIDE
  7. LACTOBACILLUS NOS [Concomitant]
     Active Substance: PROBIOTICS NOS
  8. LEVETIRACETAM. [Concomitant]
     Active Substance: LEVETIRACETAM
  9. MELATONIN [Concomitant]
     Active Substance: MELATONIN
  10. POTASSIUM CHLORIDE. [Concomitant]
     Active Substance: POTASSIUM CHLORIDE
  11. VALACICLOVIR [Concomitant]
     Active Substance: VALACYCLOVIR HYDROCHLORIDE
  12. BLINDED INFLIXIMAB [Suspect]
     Active Substance: INFLIXIMAB
     Indication: COVID-19
     Dosage: UNK, ONCE
     Route: 042
     Dates: start: 20210302
  13. SODIUM CHLORIDE. [Concomitant]
     Active Substance: SODIUM CHLORIDE
  14. DOCUSATE SODIUM. [Concomitant]
     Active Substance: DOCUSATE SODIUM
  15. GABAPENTIN. [Concomitant]
     Active Substance: GABAPENTIN
  16. LABETALOL HYDROCHLORIDE. [Concomitant]
     Active Substance: LABETALOL HYDROCHLORIDE
  17. NICARDIPINE HYDROCHLORIDE. [Concomitant]
     Active Substance: NICARDIPINE HYDROCHLORIDE
  18. CALCIUM CARBONATE. [Concomitant]
     Active Substance: CALCIUM CARBONATE
  19. CARVEDILOL. [Concomitant]
     Active Substance: CARVEDILOL
  20. CODEINE [Concomitant]
     Active Substance: CODEINE
  21. FENTANYL. [Concomitant]
     Active Substance: FENTANYL
  22. INSULIN [Concomitant]
     Active Substance: INSULIN NOS
  23. METRONIDAZOLE. [Concomitant]
     Active Substance: METRONIDAZOLE
  24. VITAMINS NOS [Concomitant]
     Active Substance: VITAMINS
  25. TROPICAMIDE. [Concomitant]
     Active Substance: TROPICAMIDE
  26. CEFTRIAXONE. [Concomitant]
     Active Substance: CEFTRIAXONE
  27. LIDOCAINE. [Concomitant]
     Active Substance: LIDOCAINE
  28. NOREPINEPHRINE BITARTRATE. [Concomitant]
     Active Substance: NOREPINEPHRINE BITARTRATE
  29. BACLOFEN. [Concomitant]
     Active Substance: BACLOFEN
  30. BENZYL ALCOHOL [Concomitant]
     Active Substance: BENZYL ALCOHOL
  31. BENZYL PENICILLIN [BENZYLPENICILLIN POTASSIUM] [Concomitant]
     Active Substance: PENICILLIN G POTASSIUM
  32. CISATRACURIUM BESILATE [Concomitant]
     Active Substance: CISATRACURIUM BESYLATE
  33. GUAIFENESIN. [Concomitant]
     Active Substance: GUAIFENESIN
  34. FAMOTIDINE. [Concomitant]
     Active Substance: FAMOTIDINE
  35. HYDROMORPHONE HYDROCHLORIDE. [Concomitant]
     Active Substance: HYDROMORPHONE HYDROCHLORIDE
  36. BUPIVACAINE HYDROCHLORIDE AND EPINEPHRINE [Concomitant]
     Active Substance: BUPIVACAINE HYDROCHLORIDE\EPINEPHRINE BITARTRATE
  37. REMDESIVIR. [Suspect]
     Active Substance: REMDESIVIR
     Indication: COVID-19
     Dosage: UNK UNK, QD
     Route: 042
     Dates: start: 20210302
  38. DEXAMETHASONE. [Concomitant]
     Active Substance: DEXAMETHASONE
  39. ENOXAPARIN SODIUM. [Concomitant]
     Active Substance: ENOXAPARIN SODIUM
  40. EUCALYPTUS GLOBULUS OIL;MENTHOL [Concomitant]
  41. LOSARTAN POTASSIUM. [Concomitant]
     Active Substance: LOSARTAN POTASSIUM
  42. MEGLUMINE GADOTERATE [Concomitant]
     Active Substance: GADOTERATE MEGLUMINE
  43. NALOXONE HYDROCHLORIDE. [Concomitant]
     Active Substance: NALOXONE HYDROCHLORIDE
  44. MENTHOL. [Concomitant]
     Active Substance: MENTHOL
  45. FUROSEMIDE. [Concomitant]
     Active Substance: FUROSEMIDE
  46. HALOPERIDOL DECANOATE. [Concomitant]
     Active Substance: HALOPERIDOL DECANOATE
  47. IOHEXOL [Concomitant]
     Active Substance: IOHEXOL
  48. SALBUTAMOL SULFATE [Concomitant]
     Active Substance: ALBUTEROL SULFATE
  49. MOMETASONE FUROATE. [Concomitant]
     Active Substance: MOMETASONE FUROATE
  50. THIAMINE HYDROCHLORIDE. [Concomitant]
     Active Substance: THIAMINE HYDROCHLORIDE
  51. VANCOMYCIN [Concomitant]
     Active Substance: VANCOMYCIN
     Indication: COVID-19
     Dosage: UNK
     Dates: start: 20210302
  52. PLACEBO [Suspect]
     Active Substance: UNSPECIFIED INGREDIENT
     Indication: COVID-19
     Dosage: UNK, ONCE
     Route: 042
     Dates: start: 20210302
  53. RAMIPRIL. [Concomitant]
     Active Substance: RAMIPRIL
  54. MINERALS NOS [Concomitant]
     Active Substance: MINERALS

REACTIONS (1)
  - Septic embolus [Recovering/Resolving]

NARRATIVE: CASE EVENT DATE: 20210308
